FAERS Safety Report 7018459-2 (Version None)
Quarter: 2010Q3

REPORT INFORMATION
  Report Type: 
  Country: None (occurrence: None)
  Receive Date: 20100924
  Receipt Date: 20100413
  Transmission Date: 20110219
  Serious: Yes (Disabling)
  Sender: FDA-Public Use
  Company Number: APP201000539

PATIENT
  Age: 50 Year
  Sex: Female

DRUGS (11)
  1. XYLOCAINE [Suspect]
     Indication: PROCEDURAL PAIN
     Dosage: CONTINUOUS VIA PUMP, INTRA-ARTICULAR
     Route: 014
     Dates: start: 20050916
  2. I-FLOW PAINBUSTER [Suspect]
     Indication: PROCEDURAL PAIN
     Dates: start: 20050916
  3. ESTROTEST (ESTROTEST) [Concomitant]
  4. TENORMIN [Concomitant]
  5. LEVOXIL (LEVOTHYROXINE SODIUM) [Concomitant]
  6. ALLEGRA [Concomitant]
  7. HYDROCHLOROTHIAZIDE [Concomitant]
  8. CHLORSCON (KEMICORT) [Concomitant]
  9. CELEBREX [Concomitant]
  10. NEXIUM [Concomitant]
  11. VITAMINS (KAPSOVIT) [Concomitant]

REACTIONS (6)
  - BLOOD PRESSURE INCREASED [None]
  - JOINT INJURY [None]
  - MUSCULOSKELETAL DISCOMFORT [None]
  - MUSCULOSKELETAL DISORDER [None]
  - MUSCULOSKELETAL PAIN [None]
  - SLEEP APNOEA SYNDROME [None]
